FAERS Safety Report 10523166 (Version 1)
Quarter: 2014Q4

REPORT INFORMATION
  Report Type: Spontaneous
  Country: DK (occurrence: CH)
  Receive Date: 20141016
  Receipt Date: 20141016
  Transmission Date: 20150528
  Serious: Yes (Hospitalization)
  Sender: FDA-Public Use
  Company Number: CH-FRI-1000071524

PATIENT
  Sex: Female

DRUGS (12)
  1. VITARUBIN SUPERCONC. [Concomitant]
     Dosage: 11.111 UG
     Route: 030
  2. DOSPIR [Concomitant]
     Route: 050
  3. TORASEMID [Concomitant]
     Active Substance: TORSEMIDE
     Dosage: 5 MG
     Route: 048
  4. MIRTAZAPIN [Concomitant]
     Active Substance: MIRTAZAPINE
     Dosage: 30 MG
     Route: 048
  5. DUPHALAC [Concomitant]
     Active Substance: LACTULOSE
     Dosage: 5 ML
     Route: 048
  6. FENTANYL MATRIX [Concomitant]
     Dosage: 4 UG
     Route: 062
  7. DAFALGAN [Concomitant]
     Active Substance: ACETAMINOPHEN
     Route: 048
  8. ESCITALOPRAM [Suspect]
     Active Substance: ESCITALOPRAM OXALATE
     Route: 048
  9. QUETIAPIN [Concomitant]
     Active Substance: QUETIAPINE
     Dosage: 25 MG
     Route: 048
  10. VI-DE 3 [Concomitant]
     Route: 048
  11. MARCOUMAR [Suspect]
     Active Substance: PHENPROCOUMON
     Indication: ANTICOAGULANT THERAPY
     Dosage: 3 MG
     Route: 048
  12. PANTOZOL [Concomitant]
     Active Substance: PANTOPRAZOLE SODIUM
     Route: 048

REACTIONS (2)
  - Hypochromic anaemia [Recovering/Resolving]
  - Gastrointestinal haemorrhage [Unknown]

NARRATIVE: CASE EVENT DATE: 201408
